FAERS Safety Report 7536444-9 (Version None)
Quarter: 2011Q2

REPORT INFORMATION
  Report Type: 
  Country: None (occurrence: None)
  Receive Date: 20110609
  Receipt Date: 20110531
  Transmission Date: 20111010
  Serious: Yes (Other)
  Sender: FDA-Public Use
  Company Number: US-B.I. PHARMACEUTICALS,INC./RIDGEFIELD-2011-BP-14444BP

PATIENT
  Age: 59 Year
  Sex: Female

DRUGS (7)
  1. SPIRIVA [Suspect]
     Indication: EMPHYSEMA
     Dosage: 18 MCG
     Route: 055
     Dates: start: 20070101
  2. CARDIZEM [Concomitant]
     Indication: HYPERTENSION
     Dosage: 420 MG
     Route: 048
  3. SYMBICORT [Concomitant]
     Indication: CHRONIC OBSTRUCTIVE PULMONARY DISEASE
     Route: 055
  4. HYZAAR [Concomitant]
     Indication: HYPERTENSION
     Route: 048
  5. SYMBICORT [Concomitant]
     Indication: EMPHYSEMA
  6. ALBUTEROL SULFATE AUTOHALER [Concomitant]
     Indication: CHRONIC OBSTRUCTIVE PULMONARY DISEASE
     Route: 055
  7. ALBUTEROL SULFATE AUTOHALER [Concomitant]
     Indication: EMPHYSEMA

REACTIONS (5)
  - MELANOMA RECURRENT [None]
  - EMPHYSEMA [None]
  - DRUG INEFFECTIVE [None]
  - CHRONIC LYMPHOCYTIC LEUKAEMIA [None]
  - STAPHYLOCOCCAL INFECTION [None]
